FAERS Safety Report 15811272 (Version 2)
Quarter: 2019Q1

REPORT INFORMATION
  Report Type: Spontaneous
  Country: US (occurrence: US)
  Receive Date: 20190111
  Receipt Date: 20190213
  Transmission Date: 20190417
  Serious: Yes (Life-Threatening, Hospitalization, Other)
  Sender: FDA-Public Use
  Company Number: US-AUROBINDO-AUR-APL-2018-032029

PATIENT

DRUGS (9)
  1. CLOZAPINE. [Suspect]
     Active Substance: CLOZAPINE
     Dosage: 125 MILLIGRAM, ONCE A DAY, IN THE EVENING
     Route: 065
     Dates: start: 20160503, end: 20160503
  2. CLOZAPINE. [Suspect]
     Active Substance: CLOZAPINE
     Dosage: 75 MILLIGRAM, ONCE A DAY, IN THE MORNING
     Route: 065
     Dates: start: 20160502, end: 20160502
  3. CLOZAPINE. [Suspect]
     Active Substance: CLOZAPINE
     Dosage: 25 MILLIGRAM, ONCE A DAY, IN THE EVENING
     Route: 065
     Dates: start: 20160502, end: 20160502
  4. CLOZAPINE. [Suspect]
     Active Substance: CLOZAPINE
     Dosage: 25 MILLIGRAM, ONCE A DAY, IN THE EVENING
     Route: 065
     Dates: start: 20160429, end: 20160429
  5. CLOZAPINE. [Suspect]
     Active Substance: CLOZAPINE
     Dosage: 150 MILLIGRAM, ONCE A DAY, IN THE EVENING
     Route: 065
     Dates: start: 20160504, end: 20160504
  6. CLOZAPINE. [Suspect]
     Active Substance: CLOZAPINE
     Indication: PSYCHOTIC DISORDER
     Dosage: 175 MILLIGRAM, ONCE A DAY, IN THE EVENING
     Route: 065
     Dates: start: 20160505, end: 20160505
  7. CLOZAPINE. [Suspect]
     Active Substance: CLOZAPINE
     Dosage: 7 MILLIGRAM, ONCE A DAY, IN THE EVENING
     Route: 065
     Dates: start: 20160501, end: 20160501
  8. CLOZAPINE. [Suspect]
     Active Substance: CLOZAPINE
     Dosage: 200 MILLIGRAM, ONCE A DAY, IN THE EVENING
     Route: 065
     Dates: start: 20160512, end: 20160515
  9. CLOZAPINE. [Suspect]
     Active Substance: CLOZAPINE
     Dosage: 50 MILLIGRAM, ONCE A DAY, IN THE MORNING
     Route: 065

REACTIONS (3)
  - Toxicity to various agents [Recovered/Resolved]
  - Myocarditis [Recovered/Resolved]
  - Cardiotoxicity [Recovered/Resolved]

NARRATIVE: CASE EVENT DATE: 20160514
